FAERS Safety Report 19735059 (Version 2)
Quarter: 2021Q3

REPORT INFORMATION
  Report Type: Spontaneous
  Country: US (occurrence: US)
  Receive Date: 20210823
  Receipt Date: 20210930
  Transmission Date: 20211014
  Serious: No
  Sender: FDA-Public Use
  Company Number: US-CELGENEUS-USA-20210804607

PATIENT
  Age: 44 Year
  Sex: Male

DRUGS (8)
  1. MYCOPHENOLATE [Concomitant]
     Active Substance: MYCOPHENOLIC ACID
     Indication: INDETERMINATE LEPROSY
     Dosage: 3000 MILLIGRAM
     Route: 065
     Dates: start: 20201130
  2. CLOFAZIMINE [Concomitant]
     Active Substance: CLOFAZIMINE
     Indication: LEPROSY
     Dosage: 50 MILLIGRAM
     Route: 048
     Dates: start: 20201026
  3. CLARITHROMYCIN. [Concomitant]
     Active Substance: CLARITHROMYCIN
     Indication: LEPROSY
     Dosage: 500 MILLIGRAM
     Route: 048
     Dates: start: 20201026
  4. THALOMID [Suspect]
     Active Substance: THALIDOMIDE
     Indication: INDETERMINATE LEPROSY
     Dosage: 150 MILLIGRAM
     Route: 048
     Dates: start: 202105
  5. DAPSONE. [Concomitant]
     Active Substance: DAPSONE
     Indication: LEPROSY
     Dosage: 100 MILLIGRAM
     Route: 065
     Dates: start: 20201026
  6. OTEZLA [Concomitant]
     Active Substance: APREMILAST
     Indication: INDETERMINATE LEPROSY
     Dosage: 60 MILLIGRAM
     Route: 048
  7. PREDNISONE. [Concomitant]
     Active Substance: PREDNISONE
     Indication: INDETERMINATE LEPROSY
     Dosage: 30 MILLIGRAM
     Route: 048
     Dates: start: 20201026
  8. THALOMID [Suspect]
     Active Substance: THALIDOMIDE
     Dosage: 150 MILLIGRAM
     Route: 048
     Dates: start: 20210601, end: 20210809

REACTIONS (1)
  - COVID-19 [Recovered/Resolved]

NARRATIVE: CASE EVENT DATE: 20210810
